FAERS Safety Report 9687246 (Version 1)
Quarter: 2013Q4

REPORT INFORMATION
  Report Type: Report from Study
  Country: US (occurrence: US)
  Receive Date: 20131113
  Receipt Date: 20131113
  Transmission Date: 20140711
  Serious: Yes (Hospitalization)
  Sender: FDA-Public Use
  Company Number: US-ABBVIE-13P-163-1167006-00

PATIENT
  Age: 41 Year
  Sex: Female

DRUGS (4)
  1. LUPRON DEPOT [Suspect]
     Indication: ENDOMETRIOSIS
     Dates: start: 201112
  2. LUPRON DEPOT [Suspect]
     Dates: start: 201306
  3. LUPRON DEPOT [Suspect]
     Dates: start: 201308
  4. NORETHINDRONE ACETATE [Concomitant]

REACTIONS (2)
  - Abdominal pain lower [Recovered/Resolved]
  - Pain in extremity [Recovered/Resolved]
